FAERS Safety Report 8359471-0 (Version None)
Quarter: 2012Q2

REPORT INFORMATION
  Report Type: 
  Country: None (occurrence: None)
  Receive Date: 20120515
  Receipt Date: 20120507
  Transmission Date: 20120825
  Serious: Yes (Hospitalization, Other)
  Sender: FDA-Public Use
  Company Number: US-BAYER-2011-081964

PATIENT
  Age: 26 Year
  Sex: Female
  Weight: 98.866 kg

DRUGS (3)
  1. YAZ [Suspect]
     Indication: ACNE
     Dosage: UNK
     Dates: start: 20071029, end: 20081202
  2. TOPAMAX [Concomitant]
     Indication: HEADACHE
     Dosage: 1 TABLET, QD
     Route: 048
     Dates: start: 20080714, end: 20081202
  3. BENTYL [Concomitant]
     Route: 048

REACTIONS (11)
  - DISCOMFORT [None]
  - BILIARY DYSKINESIA [None]
  - INCISION SITE COMPLICATION [None]
  - STRESS [None]
  - ANXIETY [None]
  - EMOTIONAL DISTRESS [None]
  - NAUSEA [None]
  - CHOLELITHIASIS [None]
  - ABDOMINAL PAIN UPPER [None]
  - CHOLECYSTITIS CHRONIC [None]
  - INCISION SITE OEDEMA [None]
